FAERS Safety Report 11371579 (Version 1)
Quarter: 2015Q3

REPORT INFORMATION
  Report Type: Report from Study
  Country: US (occurrence: US)
  Receive Date: 20150812
  Receipt Date: 20150812
  Transmission Date: 20151125
  Serious: Yes (Other)
  Sender: FDA-Public Use
  Company Number: US-BAYER-2015-383328

PATIENT
  Age: 51 Year
  Sex: Female

DRUGS (3)
  1. NEXAVAR [Suspect]
     Active Substance: SORAFENIB
     Indication: HEPATOCELLULAR CARCINOMA
     Dosage: 200 MG, BID
     Route: 048
     Dates: start: 20150707, end: 20150714
  2. NEXAVAR [Suspect]
     Active Substance: SORAFENIB
     Indication: HEPATOCELLULAR CARCINOMA
     Dosage: 400 MG, BID
     Route: 048
     Dates: start: 20150630, end: 20150706
  3. NEXAVAR [Suspect]
     Active Substance: SORAFENIB
     Indication: HEPATOCELLULAR CARCINOMA
     Dosage: 200 MG AM AND TWO TABLETS PM
     Route: 048
     Dates: start: 20150715

REACTIONS (9)
  - Mobility decreased [None]
  - Hyperkeratosis [None]
  - Pain in extremity [None]
  - Pain in extremity [None]
  - Nausea [None]
  - Diarrhoea [None]
  - Fatigue [None]
  - Erythema [None]
  - Skin discolouration [None]

NARRATIVE: CASE EVENT DATE: 2015
